FAERS Safety Report 23135286 (Version 1)
Quarter: 2023Q4

REPORT INFORMATION
  Report Type: Spontaneous
  Country: RO (occurrence: None)
  Receive Date: 20231101
  Receipt Date: 20231101
  Transmission Date: 20240110
  Serious: Yes (Congenital Anomaly, Other)
  Sender: FDA-Public Use
  Company Number: 2023A245785

PATIENT
  Age: 60 Year
  Sex: Male

DRUGS (13)
  1. IMFINZI [Suspect]
     Active Substance: DURVALUMAB
     Indication: Non-small cell lung cancer stage IIIB
     Route: 042
     Dates: start: 20230822
  2. IMFINZI [Suspect]
     Active Substance: DURVALUMAB
     Indication: Non-small cell lung cancer stage IIIB
     Route: 042
  3. AZITHROMYCIN [Concomitant]
     Active Substance: AZITHROMYCIN
     Dosage: 500 MG, 1 TABLET/DAY
  4. AVELOX [Concomitant]
     Active Substance: MOXIFLOXACIN HYDROCHLORIDE
     Dosage: 400 MG/DAY, 10-DAY
  5. AUGMENTIN [Concomitant]
     Active Substance: AMOXICILLIN\CLAVULANATE POTASSIUM
     Dosage: 1 G EVERY 12 HOURS, FOR 7 DAYS
  6. ENTEROL [Concomitant]
     Dosage: 1 TABLET X2/DAY
  7. ACETYLCYSTEINE [Concomitant]
     Active Substance: ACETYLCYSTEINE
     Dosage: 1 TABLET X2/DAY
  8. SPIRIVA [Concomitant]
     Active Substance: TIOTROPIUM BROMIDE MONOHYDRATE
     Dosage: 18 MCG 1/DAY INHALATION
  9. FLUTICASONE FUROATE\SALMETEROL XINAFOATE [Concomitant]
     Active Substance: FLUTICASONE FUROATE\SALMETEROL XINAFOATE
     Dosage: 50/500 1 X2/DAY, INHALATION
  10. VENTOLIN [Concomitant]
     Active Substance: ALBUTEROL SULFATE
     Dosage: 100 MCG 2 PUFFS WHEN NEEDED
  11. NORVASC [Concomitant]
     Active Substance: AMLODIPINE BESYLATE
  12. ENALAPRIL [Concomitant]
     Active Substance: ENALAPRIL
  13. DIUREX [Concomitant]

REACTIONS (13)
  - Pulmonary fibrosis [Unknown]
  - Systemic inflammatory response syndrome [Recovering/Resolving]
  - Hepatosplenomegaly [Unknown]
  - Leukocytosis [Recovering/Resolving]
  - Sputum purulent [Recovering/Resolving]
  - Neutrophilia [Recovering/Resolving]
  - Sputum discoloured [Recovering/Resolving]
  - Escherichia infection [Recovering/Resolving]
  - Candida infection [Recovering/Resolving]
  - Lung consolidation [Unknown]
  - Bronchiectasis [Unknown]
  - Rales [Unknown]
  - Productive cough [Unknown]

NARRATIVE: CASE EVENT DATE: 20230919
